FAERS Safety Report 23999996 (Version 1)
Quarter: 2024Q2

REPORT INFORMATION
  Report Type: Spontaneous
  Country: NL (occurrence: NL)
  Receive Date: 20240621
  Receipt Date: 20240621
  Transmission Date: 20240716
  Serious: Yes (Hospitalization)
  Sender: FDA-Public Use
  Company Number: NL-MYLANLABS-2024M1056290

PATIENT
  Age: 39 Year
  Sex: Male
  Weight: 65.9 kg

DRUGS (19)
  1. CLOZAPINE [Interacting]
     Active Substance: CLOZAPINE
     Indication: Schizoaffective disorder
     Dosage: UNK
     Route: 065
     Dates: start: 2005, end: 2018
  2. CLOZAPINE [Interacting]
     Active Substance: CLOZAPINE
     Dosage: UNK; RESUMED
     Route: 065
     Dates: start: 2019
  3. MEMANTINE [Suspect]
     Active Substance: MEMANTINE
     Indication: Schizoaffective disorder
     Dosage: 20 MILLIGRAM
     Route: 065
  4. CARBAMAZEPINE [Interacting]
     Active Substance: CARBAMAZEPINE
     Indication: Schizoaffective disorder
     Dosage: 200 MILLIGRAM, BID
     Route: 065
  5. LACTULOSE [Suspect]
     Active Substance: LACTULOSE
     Indication: Constipation prophylaxis
     Dosage: 30 MILLILITER
     Route: 065
  6. LITHIUM CARBONATE [Suspect]
     Active Substance: LITHIUM CARBONATE
     Indication: Schizoaffective disorder
     Dosage: 1200 MILLIGRAM; AT BEDTIME
     Route: 065
     Dates: end: 202105
  7. ZUCLOPENTHIXOL [Suspect]
     Active Substance: ZUCLOPENTHIXOL
     Indication: Schizoaffective disorder
     Dosage: 200 MILLIGRAM, BIWEEKLY
     Route: 065
  8. VALPROIC ACID [Suspect]
     Active Substance: VALPROIC ACID
     Indication: Schizoaffective disorder
     Dosage: 2 GRAM, QD
     Route: 065
     Dates: start: 202109
  9. POLYETHYLENE GLYCOLS [Suspect]
     Active Substance: POLYETHYLENE GLYCOLS
     Indication: Constipation
     Dosage: UNK
     Route: 065
  10. POLYETHYLENE GLYCOLS [Suspect]
     Active Substance: POLYETHYLENE GLYCOLS
     Indication: Constipation prophylaxis
  11. BISACODYL [Suspect]
     Active Substance: BISACODYL
     Indication: Constipation prophylaxis
     Dosage: UNK
     Route: 065
  12. HALOPERIDOL [Concomitant]
     Active Substance: HALOPERIDOL
     Indication: Schizoaffective disorder
     Dosage: UNK
     Route: 048
  13. HALOPERIDOL [Concomitant]
     Active Substance: HALOPERIDOL
     Indication: Schizoaffective disorder
     Dosage: UNK
     Route: 042
  14. GLYCOPYRRONIUM [Concomitant]
     Active Substance: GLYCOPYRRONIUM
     Indication: Salivary hypersecretion
     Dosage: 2 MILLIGRAM; AT BEDTIME
     Route: 065
  15. FLUVOXAMINE [Concomitant]
     Active Substance: FLUVOXAMINE
     Indication: Schizoaffective disorder
     Dosage: 25 MILLIGRAM; AFTER INTERACTION INCREASED TO 50MG
     Route: 065
  16. FLUVOXAMINE [Concomitant]
     Active Substance: FLUVOXAMINE
     Dosage: UNK
     Route: 065
  17. LORAZEPAM [Concomitant]
     Active Substance: LORAZEPAM
     Indication: Schizoaffective disorder
     Dosage: UNK
     Route: 065
  18. DROPERIDOL [Concomitant]
     Active Substance: DROPERIDOL
     Indication: Schizoaffective disorder
     Dosage: UNK
     Route: 065
  19. METOCLOPRAMIDE [Concomitant]
     Active Substance: METOCLOPRAMIDE
     Indication: Nausea
     Dosage: UNK
     Route: 065

REACTIONS (6)
  - Constipation [Recovered/Resolved]
  - Drug ineffective [Unknown]
  - Labelled drug-drug interaction medication error [Recovering/Resolving]
  - Ileus paralytic [Recovering/Resolving]
  - Salivary hypersecretion [Recovered/Resolved]
  - Off label use [Unknown]

NARRATIVE: CASE EVENT DATE: 20180101
